FAERS Safety Report 7509109-7 (Version None)
Quarter: 2011Q2

REPORT INFORMATION
  Report Type: 
  Country: None (occurrence: None)
  Receive Date: 20110527
  Receipt Date: 20110518
  Transmission Date: 20111010
  Serious: Yes (Hospitalization, Other)
  Sender: FDA-Public Use
  Company Number: US-AMGEN-USASP2011025712

PATIENT
  Age: 70 Year
  Sex: Male

DRUGS (1)
  1. ENBREL [Suspect]
     Indication: RHEUMATOID ARTHRITIS
     Dosage: 50 MG, QWK
     Dates: start: 20030715

REACTIONS (8)
  - RECTAL HAEMORRHAGE [None]
  - KNEE ARTHROPLASTY [None]
  - CONVULSION [None]
  - BRAIN NEOPLASM [None]
  - HEADACHE [None]
  - DEEP VEIN THROMBOSIS [None]
  - CORONARY ARTERY DISEASE [None]
  - ARTHRALGIA [None]
